FAERS Safety Report 7880211-3 (Version None)
Quarter: 2011Q4

REPORT INFORMATION
  Report Type: 
  Country: None (occurrence: None)
  Receive Date: 20111101
  Receipt Date: 20111028
  Transmission Date: 20120403
  Serious: Yes (Life-Threatening, Hospitalization)
  Sender: FDA-Public Use
  Company Number: FR-PFIZER INC-2011218273

PATIENT
  Age: 83 Year
  Sex: Female
  Weight: 85 kg

DRUGS (3)
  1. ZANTAC [Suspect]
     Indication: PREMEDICATION
     Dosage: UNK
  2. SOLU-MEDROL [Suspect]
     Indication: PREMEDICATION
     Dosage: 1 AMPULE, UNK
     Route: 042
     Dates: start: 20110826
  3. CHEMOTHERAPY NOS [Concomitant]
     Indication: OVARIAN CANCER
     Dosage: UNK

REACTIONS (4)
  - BLOOD PRESSURE DECREASED [None]
  - ANAPHYLACTIC SHOCK [None]
  - LOSS OF CONSCIOUSNESS [None]
  - MALAISE [None]
